FAERS Safety Report 13070416 (Version 2)
Quarter: 2017Q1

REPORT INFORMATION
  Report Type: Spontaneous
  Country: GR (occurrence: GR)
  Receive Date: 20161229
  Receipt Date: 20170105
  Transmission Date: 20170428
  Serious: Yes (Hospitalization, Other)
  Sender: FDA-Public Use
  Company Number: GR-MYLANLABS-2016M1057796

PATIENT

DRUGS (8)
  1. CLOZAPINE. [Suspect]
     Active Substance: CLOZAPINE
     Dosage: 75 UNK, UNK
  2. CLOZAPINE. [Suspect]
     Active Substance: CLOZAPINE
     Indication: DELUSION
     Dosage: 200 MG, UNK
     Route: 065
  3. CLOZAPINE. [Suspect]
     Active Substance: CLOZAPINE
     Indication: SCHIZOPHRENIA
     Dosage: 12.5 UNK, UNK
  4. OLANZAPINE. [Suspect]
     Active Substance: OLANZAPINE
     Indication: DELUSION
     Dosage: 20 MG, QD
     Route: 065
  5. HALOPERIDOL. [Concomitant]
     Active Substance: HALOPERIDOL
     Indication: DELUSION
     Dosage: 5 MG, TID
  6. CLOZAPINE. [Suspect]
     Active Substance: CLOZAPINE
     Dosage: 37.5 UNK, UNK
  7. CLOZAPINE. [Suspect]
     Active Substance: CLOZAPINE
     Dosage: 25 UNK, UNK
  8. CLOZAPINE. [Suspect]
     Active Substance: CLOZAPINE
     Dosage: 50 UNK, UNK

REACTIONS (10)
  - Myoclonus [Recovered/Resolved]
  - Mental disorder [Recovered/Resolved]
  - Drug ineffective [Recovered/Resolved]
  - Dysphemia [Recovered/Resolved]
  - Sedation [Recovered/Resolved]
  - Electroencephalogram abnormal [Unknown]
  - Fall [Recovered/Resolved]
  - Atonic seizures [Recovered/Resolved]
  - Antipsychotic drug level increased [Recovered/Resolved]
  - Epilepsy [Recovered/Resolved]
